FAERS Safety Report 6783556-3 (Version None)
Quarter: 2010Q2

REPORT INFORMATION
  Report Type: 
  Country: None (occurrence: None)
  Receive Date: 20100622
  Receipt Date: 20100611
  Transmission Date: 20101027
  Serious: Yes (Hospitalization)
  Sender: FDA-Public Use
  Company Number: NL-B.I. PHARMACEUTICALS,INC./RIDGEFIELD-2010-BP-06932YA

PATIENT
  Sex: Male
  Weight: 65 kg

DRUGS (2)
  1. TAMSULOSIN HCL [Suspect]
     Indication: BENIGN PROSTATIC HYPERPLASIA
     Route: 048
     Dates: start: 20100508
  2. TAMSULOSIN HCL [Suspect]
     Indication: URINARY TRACT DISORDER

REACTIONS (1)
  - CARDIAC DISORDER [None]
